FAERS Safety Report 8796163 (Version 1)
Quarter: 2012Q4

REPORT INFORMATION
  Report Type: 
  Country: HU (occurrence: HU)
  Receive Date: 20120920
  Receipt Date: 20120920
  Transmission Date: 20130627
  Serious: Yes (Other)
  Sender: FDA-Public Use
  Company Number: HU-PFIZER INC-2012229672

PATIENT
  Age: 72 Year
  Sex: Female
  Weight: 58 kg

DRUGS (5)
  1. XALATAN [Suspect]
     Indication: GLAUCOMA
     Dosage: 1x1 drop/day
  2. CHINOTAL [Concomitant]
     Dosage: UNK
  3. ASPIRIN PROTECT [Concomitant]
     Dosage: UNK
  4. VOLTAREN [Concomitant]
     Dosage: UNK
  5. MAXIDEX [Concomitant]
     Dosage: UNK

REACTIONS (1)
  - Visual impairment [Not Recovered/Not Resolved]
